FAERS Safety Report 24957986 (Version 1)
Quarter: 2025Q1

REPORT INFORMATION
  Report Type: Spontaneous
  Country: DE (occurrence: DE)
  Receive Date: 20250212
  Receipt Date: 20250212
  Transmission Date: 20250408
  Serious: Yes (Other)
  Sender: AUROBINDO
  Company Number: DE-EMB-M202302655-1

PATIENT
  Age: 33 Year
  Sex: Female
  Weight: 72 kg

DRUGS (4)
  1. SERTRALINE [Suspect]
     Active Substance: SERTRALINE HYDROCHLORIDE
     Indication: Depression
     Dosage: 150 MILLIGRAM, ONCE A DAY
     Route: 048
     Dates: start: 202210, end: 202304
  2. DOXYLAMINE SUCCINATE\PYRIDOXINE HYDROCHLORIDE [Suspect]
     Active Substance: DOXYLAMINE SUCCINATE\PYRIDOXINE HYDROCHLORIDE
     Indication: Morning sickness
     Dosage: 10 MILLIGRAM, EVERY OTHER DAY
     Route: 048
     Dates: start: 202301, end: 202304
  3. ZINC [Concomitant]
     Active Substance: ZINC
     Indication: Herpes zoster
     Route: 003
     Dates: start: 202303
  4. Cariban [Concomitant]
     Indication: Morning sickness
     Dosage: 10 MILLIGRAM, ONCE A DAY
     Route: 048
     Dates: start: 202211

REACTIONS (2)
  - Stillbirth [Recovered/Resolved]
  - Maternal exposure during pregnancy [Unknown]

NARRATIVE: CASE EVENT DATE: 20230401
